FAERS Safety Report 23862628 (Version 3)
Quarter: 2025Q1

REPORT INFORMATION
  Report Type: Spontaneous
  Country: HR (occurrence: HR)
  Receive Date: 20240516
  Receipt Date: 20250318
  Transmission Date: 20250408
  Serious: Yes (Other)
  Sender: ALEXION PHARMACEUTICALS
  Company Number: 2024A108360

PATIENT

DRUGS (7)
  1. FULVESTRANT [Suspect]
     Active Substance: FULVESTRANT
     Indication: Breast cancer metastatic
     Route: 065
  2. FULVESTRANT [Suspect]
     Active Substance: FULVESTRANT
     Route: 065
  3. RIBOCICLIB [Suspect]
     Active Substance: RIBOCICLIB
     Indication: Breast cancer metastatic
     Route: 065
  4. RIBOCICLIB [Suspect]
     Active Substance: RIBOCICLIB
     Route: 065
  5. RIBOCICLIB [Suspect]
     Active Substance: RIBOCICLIB
     Route: 065
  6. RIBOCICLIB [Suspect]
     Active Substance: RIBOCICLIB
     Route: 065
  7. RIBOCICLIB [Suspect]
     Active Substance: RIBOCICLIB
     Route: 065

REACTIONS (7)
  - Electrocardiogram QT prolonged [Recovered/Resolved]
  - Ventricular tachycardia [Recovered/Resolved]
  - Torsade de pointes [Recovered/Resolved]
  - Carcinoembryonic antigen increased [Recovered/Resolved]
  - Chest pain [Recovered/Resolved]
  - Platelet count decreased [Recovered/Resolved]
  - White blood cell count decreased [Recovered/Resolved]
